FAERS Safety Report 8920441 (Version 1)
Quarter: 2012Q4

REPORT INFORMATION
  Report Type: 
  Country: US (occurrence: US)
  Receive Date: 20121121
  Receipt Date: 20121121
  Transmission Date: 20130627
  Serious: No
  Sender: FDA-Public Use
  Company Number: US-ASTRAZENECA-2012SE84599

PATIENT
  Age: 47 Year
  Sex: Male

DRUGS (4)
  1. CAPRELSA [Suspect]
     Route: 048
     Dates: start: 20121016
  2. CALCITRIOL [Concomitant]
  3. CALCIUM [Concomitant]
  4. SYNTHROID [Concomitant]

REACTIONS (4)
  - Haematochezia [Recovered/Resolved]
  - Acne [Unknown]
  - Headache [Unknown]
  - Dry skin [Unknown]
